FAERS Safety Report 7370716-6 (Version None)
Quarter: 2011Q1

REPORT INFORMATION
  Report Type: 
  Country: None (occurrence: None)
  Receive Date: 20110323
  Receipt Date: 20110302
  Transmission Date: 20110831
  Serious: Yes (Hospitalization)
  Sender: FDA-Public Use
  Company Number: IT-BAYER-2011-019691

PATIENT
  Sex: Female

DRUGS (8)
  1. PLAVIX [Suspect]
     Indication: CORONARY ANGIOPLASTY
     Dosage: 75 MG, QD
     Route: 048
     Dates: start: 20100301, end: 20110217
  2. TENORMIN [Concomitant]
     Dosage: 100 MG, UNK
  3. TORVAST [Concomitant]
     Dosage: 80 MG, UNK
  4. TRIATEC [Concomitant]
  5. ASPIRIN [Suspect]
     Indication: CORONARY ANGIOPLASTY
     Dosage: 100 MG, QD
     Route: 048
     Dates: start: 20100301, end: 20110204
  6. ASPIRIN [Suspect]
     Dosage: 100 MG, QD
     Route: 048
     Dates: start: 20110209, end: 20110217
  7. PANTORC [Concomitant]
  8. HEPARIN [Concomitant]
     Route: 058

REACTIONS (1)
  - RECTAL HAEMORRHAGE [None]
